FAERS Safety Report 5957556-7 (Version None)
Quarter: 2008Q4

REPORT INFORMATION
  Report Type: 
  Country: None (occurrence: None)
  Receive Date: 20081117
  Receipt Date: 20081117
  Transmission Date: 20090506
  Serious: Yes (Other)
  Sender: FDA-Public Use
  Company Number: None

PATIENT
  Sex: Female

DRUGS (1)
  1. WELLBUTRIN SR [Suspect]
     Indication: BIPOLAR DISORDER
     Dosage: 100 MG 1 PER DAY BY MOUTH
     Route: 048
     Dates: start: 20081014, end: 20081015

REACTIONS (1)
  - DRUG HYPERSENSITIVITY [None]
